FAERS Safety Report 12832886 (Version 3)
Quarter: 2020Q2

REPORT INFORMATION
  Report Type: Report from Study
  Country: US (occurrence: US)
  Receive Date: 20161010
  Receipt Date: 20200514
  Transmission Date: 20200713
  Serious: Yes (Other)
  Sender: FDA-Public Use
  Company Number: US-BIOVITRUM-2016US0797

PATIENT
  Age: 18 Year
  Sex: Male
  Weight: 29 kg

DRUGS (2)
  1. KINERET [Suspect]
     Active Substance: ANAKINRA
     Indication: DEFICIENCY OF THE INTERLEUKIN-1 RECEPTOR ANTAGONIST
     Dosage: 1 MG/KG/DAY AT STUDY DAY 1 30JUL2008, DOSE ADMINSTERED SINCE THE START AND THE LAST STUDY VISIT RANG
     Route: 058
     Dates: start: 20080730
  2. PREDNISONE. [Concomitant]
     Active Substance: PREDNISONE
     Indication: ARTERITIS CORONARY
     Route: 048
     Dates: start: 20160410

REACTIONS (5)
  - Aortitis [Not Recovered/Not Resolved]
  - Vasculitis [Unknown]
  - Non-neutralising antibodies positive [Unknown]
  - Skin lesion [Recovered/Resolved]
  - Drug ineffective for unapproved indication [Unknown]

NARRATIVE: CASE EVENT DATE: 20170707
